FAERS Safety Report 9364464 (Version 1)
Quarter: 2013Q2

REPORT INFORMATION
  Report Type: Spontaneous
  Country: AU (occurrence: AU)
  Receive Date: 20130624
  Receipt Date: 20130624
  Transmission Date: 20140414
  Serious: Yes (Other)
  Sender: FDA-Public Use
  Company Number: AU-NICOBRDEVP-2013-10790

PATIENT
  Age: 45 Year
  Sex: Male

DRUGS (5)
  1. LABETALOL [Suspect]
     Indication: HYPERTENSION
     Dosage: 800 MG, TID
     Route: 065
  2. ASPIRIN (UNKNOWN) [Suspect]
     Indication: HYPERTENSION
     Dosage: 100 MG, DAILY
     Route: 065
  3. PERINDOPRIL (UNKNOWN) [Suspect]
     Indication: HYPERTENSION
     Dosage: 10 MG, DAILY
     Route: 065
  4. AMLODIPINE (UNKNOWN) [Suspect]
     Indication: HYPERTENSION
     Dosage: 10 MG, DAILY
     Route: 065
  5. PRAZOSIN (WATSON LABORATORIES) [Suspect]
     Indication: HYPERTENSION
     Dosage: 4 MG, BID
     Route: 065

REACTIONS (1)
  - Lichenoid keratosis [Recovered/Resolved]
